FAERS Safety Report 6419980-8 (Version None)
Quarter: 2009Q4

REPORT INFORMATION
  Report Type: 
  Country: None (occurrence: None)
  Receive Date: 20091029
  Receipt Date: 20091020
  Transmission Date: 20100525
  Serious: Yes (Hospitalization)
  Sender: FDA-Public Use
  Company Number: SE-PFIZER INC-2009285763

PATIENT
  Age: 64 Year

DRUGS (2)
  1. SUXINUTIN [Suspect]
     Indication: EPILEPSY
     Dosage: UNK
  2. ERGENYL - SLOW RELEASE [Suspect]
     Indication: EPILEPSY
     Dosage: 400 MG, 1X/DAY
     Route: 048

REACTIONS (4)
  - APHASIA [None]
  - BALANCE DISORDER [None]
  - DYSGRAPHIA [None]
  - LUNG INFILTRATION [None]
